FAERS Safety Report 13736193 (Version 2)
Quarter: 2017Q3

REPORT INFORMATION
  Report Type: Spontaneous
  Country: US (occurrence: US)
  Receive Date: 20170710
  Receipt Date: 20170711
  Transmission Date: 20171127
  Serious: No
  Sender: FDA-Public Use
  Company Number: US-BAYER-2017-131286

PATIENT
  Age: 65 Year
  Sex: Male
  Weight: 95.24 kg

DRUGS (5)
  1. DIOVAN [Concomitant]
     Active Substance: VALSARTAN
  2. LANTUS [Concomitant]
     Active Substance: INSULIN GLARGINE
  3. ALEVE [Suspect]
     Active Substance: NAPROXEN SODIUM
     Indication: PAIN
     Dosage: 1 DF, UNK (A FEW YEARS)
     Route: 048
  4. AMARIL VACCINE [Concomitant]
  5. NOVOLOG [Concomitant]
     Active Substance: INSULIN ASPART

REACTIONS (2)
  - Product use complaint [Unknown]
  - Product size issue [None]
